FAERS Safety Report 5956804-7 (Version None)
Quarter: 2008Q4

REPORT INFORMATION
  Report Type: 
  Country: None (occurrence: None)
  Receive Date: 20081114
  Receipt Date: 20081114
  Transmission Date: 20090506
  Serious: Yes (Other)
  Sender: FDA-Public Use
  Company Number: None

PATIENT
  Age: 68 Year
  Sex: Male
  Weight: 89.8122 kg

DRUGS (3)
  1. PLAVIX [Suspect]
     Indication: AORTIC VALVE REPLACEMENT
     Dosage: 75MG DAILY PO
     Route: 048
     Dates: start: 20040429, end: 20081113
  2. PLAVIX [Suspect]
     Indication: CORONARY ARTERY BYPASS
     Dosage: 75MG DAILY PO
     Route: 048
     Dates: start: 20040429, end: 20081113
  3. PLAVIX [Suspect]
     Indication: CORONARY ARTERY DISEASE
     Dosage: 75MG DAILY PO
     Route: 048
     Dates: start: 20040429, end: 20081113

REACTIONS (1)
  - HAEMATOSPERMIA [None]
